FAERS Safety Report 24384932 (Version 2)
Quarter: 2024Q4

REPORT INFORMATION
  Report Type: Spontaneous
  Country: CN (occurrence: CN)
  Receive Date: 20241001
  Receipt Date: 20241009
  Transmission Date: 20250115
  Serious: Yes (Hospitalization)
  Sender: NOVARTIS
  Company Number: CN-002147023-NVSC2024CN192038

PATIENT
  Age: 46 Year
  Sex: Female
  Weight: 62 kg

DRUGS (1)
  1. TEGRETOL [Suspect]
     Active Substance: CARBAMAZEPINE
     Indication: Headache
     Dosage: 200 MG, QD
     Route: 048
     Dates: start: 20240907, end: 20240917

REACTIONS (8)
  - Macule [Recovering/Resolving]
  - Mouth ulceration [Recovering/Resolving]
  - Pyrexia [Recovering/Resolving]
  - Drug eruption [Unknown]
  - Erythema [Recovering/Resolving]
  - Blister [Recovering/Resolving]
  - Eyelid oedema [Unknown]
  - Conjunctival hyperaemia [Unknown]

NARRATIVE: CASE EVENT DATE: 20240916
